FAERS Safety Report 5475399-8 (Version None)
Quarter: 2007Q4

REPORT INFORMATION
  Report Type: 
  Country: None (occurrence: None)
  Receive Date: 20071003
  Receipt Date: 20070925
  Transmission Date: 20080405
  Serious: Yes (Other)
  Sender: FDA-Public Use
  Company Number: PHBS2007BR16092

PATIENT
  Age: 23 Year
  Sex: Female

DRUGS (2)
  1. PERLUTAN [Concomitant]
     Dosage: 1 DOSE EACH 28 DAYS
     Route: 030
     Dates: end: 20070910
  2. CATAFLAM [Suspect]
     Indication: TOOTHACHE
     Dosage: UNK, UNK
     Route: 048
     Dates: start: 20070922, end: 20070925

REACTIONS (1)
  - VAGINAL HAEMORRHAGE [None]
